FAERS Safety Report 8215669 (Version 8)
Quarter: 2013Q3

REPORT INFORMATION
  Report Type: Spontaneous
  Country: US (occurrence: US)
  Receive Date: 20111031
  Receipt Date: 20130912
  Transmission Date: 20140515
  Serious: Yes (Hospitalization, Congenital Anomaly)
  Sender: FDA-Public Use
  Company Number: US-GLAXOSMITHKLINE-A0951258A

PATIENT
  Age: 0 Day
  Sex: Female

DRUGS (6)
  1. PAXIL CR [Suspect]
     Indication: ANXIETY
     Dosage: 12.5MG PER DAY
     Route: 064
     Dates: start: 2001, end: 2007
  2. PRENATAL VITAMINS [Concomitant]
     Route: 064
     Dates: start: 200311, end: 200410
  3. VITAMIN B6 [Concomitant]
     Route: 064
     Dates: start: 20040127
  4. ZITHROMAX [Concomitant]
     Indication: UPPER RESPIRATORY TRACT INFECTION
     Route: 064
     Dates: start: 200408
  5. FOLIC ACID [Concomitant]
     Route: 064
     Dates: start: 200311, end: 200410
  6. ALBUTEROL [Concomitant]
     Indication: UPPER RESPIRATORY TRACT INFECTION
     Route: 064
     Dates: start: 200408

REACTIONS (4)
  - Schizencephaly [Unknown]
  - Congenital central nervous system anomaly [Unknown]
  - Congenital hearing disorder [Unknown]
  - Foetal exposure during pregnancy [Unknown]
